FAERS Safety Report 4685527-X (Version None)
Quarter: 2005Q2

REPORT INFORMATION
  Report Type: 
  Country: None (occurrence: None)
  Receive Date: 20050608
  Receipt Date: 20050504
  Transmission Date: 20051028
  Serious: Yes (Hospitalization)
  Sender: FDA-Public Use
  Company Number: 2005UW07005

PATIENT
  Age: 30433 Day
  Sex: Male
  Weight: 70.9 kg

DRUGS (8)
  1. CRESTOR [Suspect]
     Indication: HYPERCHOLESTEROLAEMIA
     Route: 048
     Dates: start: 20041227, end: 20050222
  2. ASPIRIN [Concomitant]
     Route: 048
  3. ANAFRANIL [Concomitant]
     Route: 048
  4. ZETIA [Concomitant]
     Route: 048
  5. B12 [Concomitant]
  6. LUPRON [Concomitant]
     Dosage: 30 MG IM EVERY FOUR MONTHS
     Route: 030
  7. LIPITOR [Concomitant]
     Route: 048
  8. MULTI-VITAMIN [Concomitant]

REACTIONS (8)
  - ALANINE AMINOTRANSFERASE INCREASED [None]
  - ASPARTATE AMINOTRANSFERASE INCREASED [None]
  - ASTHENIA [None]
  - DIFFICULTY IN WALKING [None]
  - EXTRAPYRAMIDAL DISORDER [None]
  - FALL [None]
  - LIVER FUNCTION TEST ABNORMAL [None]
  - VISUAL ACUITY REDUCED [None]
